FAERS Safety Report 9272689 (Version 1)
Quarter: 2013Q2

REPORT INFORMATION
  Report Type: Spontaneous
  Country: GB (occurrence: GB)
  Receive Date: 20130506
  Receipt Date: 20130506
  Transmission Date: 20140414
  Serious: Yes (Other)
  Sender: FDA-Public Use
  Company Number: GB-TEVA-402599ISR

PATIENT
  Age: 71 Year
  Sex: Male

DRUGS (2)
  1. ATENOLOL [Suspect]
     Indication: HYPERTENSION
     Dosage: RED TABLETS
     Route: 048
     Dates: start: 20130405, end: 20130415
  2. ATENOLOL [Suspect]
     Dosage: WHITE TABLETS
     Route: 048
     Dates: start: 20130415

REACTIONS (7)
  - Anxiety [Recovered/Resolved]
  - Adverse drug reaction [Recovered/Resolved]
  - Malaise [Recovered/Resolved]
  - Panic attack [Recovered/Resolved]
  - Tremor [Recovered/Resolved]
  - Nausea [Recovered/Resolved]
  - Insomnia [Recovered/Resolved]
